FAERS Safety Report 4867510-4 (Version None)
Quarter: 2005Q4

REPORT INFORMATION
  Report Type: 
  Country: None (occurrence: None)
  Receive Date: 20051228
  Receipt Date: 20051129
  Transmission Date: 20060501
  Serious: Yes (Life-Threatening, Hospitalization)
  Sender: FDA-Public Use
  Company Number: FR-BRISTOL-MYERS SQUIBB COMPANY-13198221

PATIENT
  Age: 73 Year
  Sex: Male

DRUGS (7)
  1. SUSTIVA [Suspect]
     Indication: HIV INFECTION
     Route: 048
  2. ELISOR TABS [Suspect]
     Indication: HYPERCHOLESTEROLAEMIA
     Route: 048
  3. AMLOR [Suspect]
  4. ASPEGIC [Suspect]
  5. COMBIVIR [Concomitant]
  6. AMARYL [Concomitant]
  7. PROSCAR [Concomitant]

REACTIONS (1)
  - MYOCARDIAL INFARCTION [None]
